FAERS Safety Report 17165347 (Version 6)
Quarter: 2022Q4

REPORT INFORMATION
  Report Type: Spontaneous
  Country: US (occurrence: US)
  Receive Date: 20191217
  Receipt Date: 20221208
  Transmission Date: 20230113
  Serious: Yes (Hospitalization, Other)
  Sender: FDA-Public Use
  Company Number: US-PFIZER INC-2018352742

PATIENT
  Age: 74 Year
  Sex: Female
  Weight: 55.329 kg

DRUGS (5)
  1. XELJANZ XR [Suspect]
     Active Substance: TOFACITINIB CITRATE
     Indication: Rheumatoid arthritis
     Dosage: 11 MG, 1X/DAY
     Route: 048
  2. LEFLUNOMIDE [Concomitant]
     Active Substance: LEFLUNOMIDE
     Indication: Rheumatoid arthritis
     Dosage: 20 MG, 1X/DAY
     Route: 048
  3. CALCIUM [Concomitant]
     Active Substance: CALCIUM
     Dosage: UNK
  4. CHOLECALCIFEROL [Concomitant]
     Active Substance: CHOLECALCIFEROL
     Dosage: UNK
  5. OXYCODONE [Concomitant]
     Active Substance: OXYCODONE
     Indication: Pain
     Dosage: UP TO THREE TIMES DAILY, SHE RARELY DOES THAT, MAYBE TWO TIMES A DAY, AS NEEDED
     Route: 048

REACTIONS (8)
  - Cerebrospinal fluid leakage [Unknown]
  - Intervertebral disc disorder [Unknown]
  - Diverticulitis [Unknown]
  - Gastrointestinal disorder [Unknown]
  - Anxiety [Unknown]
  - Bradyphrenia [Unknown]
  - Visual impairment [Unknown]
  - Blindness unilateral [Unknown]

NARRATIVE: CASE EVENT DATE: 20200101
